FAERS Safety Report 14975299 (Version 1)
Quarter: 2018Q2

REPORT INFORMATION
  Report Type: Report from Study
  Country: DE (occurrence: DE)
  Receive Date: 20180605
  Receipt Date: 20180605
  Transmission Date: 20180711
  Serious: Yes (Other)
  Sender: FDA-Public Use
  Company Number: PHHY2018DE070767

PATIENT
  Age: 76 Year
  Sex: Female
  Weight: 78 kg

DRUGS (14)
  1. DESFERAL [Suspect]
     Active Substance: DEFEROXAMINE MESYLATE
     Indication: REFRACTORY CYTOPENIA WITH UNILINEAGE DYSPLASIA
     Dosage: UNK
     Route: 042
     Dates: start: 20170628, end: 20170906
  2. ARANESP [Concomitant]
     Active Substance: DARBEPOETIN ALFA
     Dosage: 40 UG, QW
     Route: 065
     Dates: start: 20150817, end: 20161006
  3. METOPROLOL. [Concomitant]
     Active Substance: METOPROLOL
     Dosage: 190 MG, BID
     Route: 065
     Dates: start: 20171113
  4. ARANESP [Concomitant]
     Active Substance: DARBEPOETIN ALFA
     Dosage: 60 UG, QW
     Route: 065
     Dates: start: 20170109, end: 20170720
  5. EXJADE [Suspect]
     Active Substance: DEFERASIROX
     Indication: IRON OVERLOAD
     Dosage: 4.44 MG/KG BODYWEIGHT/DAY=360 MG/D, QD
     Route: 065
     Dates: start: 20170907, end: 20171205
  6. ELIQUIS [Concomitant]
     Active Substance: APIXABAN
     Indication: ATRIAL FIBRILLATION
     Dosage: 5 MG, BID
     Route: 065
  7. METOPROLOL. [Concomitant]
     Active Substance: METOPROLOL
     Indication: ATRIAL FIBRILLATION
     Dosage: 142.5 MG, BID (0,5-1-0)
     Route: 065
     Dates: end: 20171112
  8. EXJADE [Suspect]
     Active Substance: DEFERASIROX
     Indication: REFRACTORY CYTOPENIA WITH UNILINEAGE DYSPLASIA
     Dosage: 7.2 MG/KG BODYWEIGHT/DAY=1X180 MG PLUS 1X360 MG/D, QD
     Route: 065
     Dates: start: 20171206, end: 20180117
  9. EXJADE [Suspect]
     Active Substance: DEFERASIROX
     Dosage: UNK
     Route: 065
     Dates: start: 20171206, end: 20180118
  10. ERYPO [Concomitant]
     Indication: IRON OVERLOAD
     Dosage: 40000 IE, QW
     Route: 065
     Dates: start: 20170721
  11. ARANESP [Concomitant]
     Active Substance: DARBEPOETIN ALFA
     Indication: IRON OVERLOAD
     Dosage: 10 UG, QW
     Route: 065
     Dates: start: 20150721, end: 20150816
  12. DESFERAL [Suspect]
     Active Substance: DEFEROXAMINE MESYLATE
     Indication: IRON OVERLOAD
     Dosage: 25.64 MG/KG BODYWEIGHT, QD
     Route: 042
     Dates: start: 20160930, end: 20170627
  13. DESFERAL [Suspect]
     Active Substance: DEFEROXAMINE MESYLATE
     Dosage: 26 MG/KG BODYWEIGHT/DAY = 250 (UNIT NOT PROVIDED) DURING BLOOD TRANSFUSIONS, QD
     Route: 042
     Dates: start: 20180104
  14. ARANESP [Concomitant]
     Active Substance: DARBEPOETIN ALFA
     Dosage: 50 UG, QW
     Route: 065
     Dates: start: 20161007, end: 20170108

REACTIONS (3)
  - Wrong technique in product usage process [Unknown]
  - Transaminases increased [Recovered/Resolved]
  - Jaundice [Unknown]

NARRATIVE: CASE EVENT DATE: 20180118
